FAERS Safety Report 16832320 (Version 1)
Quarter: 2019Q4

REPORT INFORMATION
  Report Type: Spontaneous
  Country: US (occurrence: US)
  Receive Date: 20190920
  Receipt Date: 20190920
  Transmission Date: 20200122
  Serious: Yes (Hospitalization)
  Sender: FDA-Public Use
  Company Number: None

PATIENT
  Age: 54 Year
  Sex: Female
  Weight: 69.75 kg

DRUGS (1)
  1. ZIMS MAX FREEZE PAIN RELIEF [Suspect]
     Active Substance: MENTHOL

REACTIONS (8)
  - Oral discomfort [None]
  - Eye irritation [None]
  - Fall [None]
  - Burning sensation [None]
  - Pruritus [None]
  - Pharyngeal swelling [None]
  - Skin discolouration [None]
  - Anaphylactic shock [None]

NARRATIVE: CASE EVENT DATE: 20190906
